FAERS Safety Report 15728638 (Version 1)
Quarter: 2018Q4

REPORT INFORMATION
  Report Type: Spontaneous
  Country: US (occurrence: US)
  Receive Date: 20181217
  Receipt Date: 20181217
  Transmission Date: 20190205
  Serious: Yes (Other)
  Sender: FDA-Public Use
  Company Number: US-LEXICON PHARMACEUTICALS, INC-18-1606-01532

PATIENT
  Sex: Male

DRUGS (2)
  1. TELOTRISTAT ETHYL [Suspect]
     Active Substance: TELOTRISTAT ETHYL
     Route: 048
     Dates: start: 201810
  2. TELOTRISTAT ETHYL [Suspect]
     Active Substance: TELOTRISTAT ETHYL
     Indication: CARCINOID SYNDROME
     Route: 048
     Dates: start: 20180920, end: 201810

REACTIONS (7)
  - Muscle spasms [Unknown]
  - Vision blurred [Unknown]
  - Portal shunt procedure [Unknown]
  - Flatulence [Unknown]
  - Chills [Unknown]
  - Incision site pain [Unknown]
  - Flushing [Unknown]

NARRATIVE: CASE EVENT DATE: 2018
